FAERS Safety Report 9241516 (Version 1)
Quarter: 2013Q1

REPORT INFORMATION
  Report Type: Spontaneous
  Country: US (occurrence: None)
  Receive Date: 20121121
  Receipt Date: 20121121
  Transmission Date: 20140127
  Serious: Yes (Hospitalization)
  Sender: FDA-Public Use
  Company Number: D1200433

PATIENT
  Age: 68 Year
  Sex: Female

DRUGS (4)
  1. JANTOVEN [Suspect]
     Indication: ATRIAL FIBRILLATION
     Dosage: 3 TABLETS , 5 DAYS PER WEEK , ORAL
     Dates: end: 20120204
  2. JANTOVEN [Suspect]
     Indication: ATRIAL FIBRILLATION
     Dosage: 1 TABLET , 2 DAYS PER WEEK, ORAL
     Dates: end: 20120204
  3. NADOLOL (NADOLOL) [Concomitant]
  4. LISINOPRIL / HCTZ (PRINZIDE) [Concomitant]

REACTIONS (5)
  - International normalised ratio increased [None]
  - Prothrombin time prolonged [None]
  - Confusional state [None]
  - Accidental overdose [None]
  - International normalised ratio decreased [None]
